FAERS Safety Report 6111770-9 (Version None)
Quarter: 2009Q1

REPORT INFORMATION
  Report Type: 
  Country: None (occurrence: None)
  Receive Date: 20090311
  Receipt Date: 20081111
  Transmission Date: 20090719
  Serious: No
  Sender: FDA-Public Use
  Company Number: US-TYCO HEALTHCARE/MALLINCKRODT-T200801941

PATIENT

DRUGS (2)
  1. RESTORIL [Suspect]
     Indication: INSOMNIA
     Dosage: 7.5 MG, UNK
     Dates: start: 20081108
  2. DARVOCET                           /00220901/ [Concomitant]

REACTIONS (1)
  - CHEST PAIN [None]
